FAERS Safety Report 9746036 (Version 2)
Quarter: 2014Q1

REPORT INFORMATION
  Report Type: Spontaneous
  Country: GB (occurrence: None)
  Receive Date: 20131205
  Receipt Date: 20140212
  Transmission Date: 20141002
  Serious: Yes (Other)
  Sender: FDA-Public Use
  Company Number: AUR-APL-2013-10095

PATIENT
  Age: 28 Year
  Sex: Female

DRUGS (5)
  1. LAMOTRIGINE (LAMOTRIGINE) [Suspect]
     Indication: PRODUCT USED FOR UNKNOWN INDICATION
     Dates: start: 2012
  2. EPILIM CHRONO [Suspect]
     Indication: BIPOLAR DISORDER
     Route: 048
     Dates: start: 20131105, end: 20131111
  3. EPILIM CHRONO [Suspect]
     Indication: OFF LABEL USE
     Route: 048
     Dates: start: 20131105, end: 20131111
  4. PRIADEL [Concomitant]
  5. ZOLPIDEM (ZOLPIDEM) [Concomitant]

REACTIONS (4)
  - Visual impairment [None]
  - Diplopia [None]
  - Off label use [None]
  - Nausea [None]
